FAERS Safety Report 5114766-9 (Version None)
Quarter: 2006Q3

REPORT INFORMATION
  Report Type: 
  Country: None (occurrence: None)
  Receive Date: 20060922
  Receipt Date: 20060906
  Transmission Date: 20061208
  Serious: Yes (Congenital Anomaly, Other)
  Sender: FDA-Public Use
  Company Number: 2006-04-1315

PATIENT
  Age: 23 Year
  Sex: Female

DRUGS (6)
  1. PEG-INTRON [Suspect]
     Indication: HEPATITIS C
     Dosage: SC
     Route: 058
     Dates: end: 20051115
  2. REBETOL [Suspect]
     Indication: HEPATITIS C
     Dosage: 1000 MG;PO
     Route: 048
     Dates: end: 20051115
  3. ZOLOFT [Concomitant]
  4. TYLENOL [Concomitant]
  5. PRENATAL VITAMINS [Concomitant]
  6. PHENERGAN [Concomitant]

REACTIONS (3)
  - CYSTIC LYMPHANGIOMA [None]
  - DRUG EXPOSURE DURING PREGNANCY [None]
  - INTRA-UTERINE DEATH [None]
